FAERS Safety Report 22020810 (Version 3)
Quarter: 2023Q2

REPORT INFORMATION
  Report Type: Spontaneous
  Country: US (occurrence: None)
  Receive Date: 20230222
  Receipt Date: 20230523
  Transmission Date: 20230721
  Serious: Yes (Hospitalization)
  Sender: FDA-Public Use
  Company Number: US-ROCHE-3291296

PATIENT
  Sex: Male

DRUGS (4)
  1. HEMLIBRA [Suspect]
     Active Substance: EMICIZUMAB-KXWH
     Indication: Factor VIII deficiency
     Dosage: DOSE: 1.4ML (210MG), 105MG/0.7M L VIAL
     Route: 058
  2. ATOMOXETINE [Concomitant]
     Active Substance: ATOMOXETINE
  3. GUAIFENESIN [Concomitant]
     Active Substance: GUAIFENESIN
  4. METHYLPHENIDATE [Concomitant]
     Active Substance: METHYLPHENIDATE

REACTIONS (1)
  - Haemorrhage [Recovering/Resolving]
